FAERS Safety Report 7936433-6 (Version None)
Quarter: 2011Q4

REPORT INFORMATION
  Report Type: 
  Country: None (occurrence: None)
  Receive Date: 20111123
  Receipt Date: 20111112
  Transmission Date: 20120403
  Serious: No
  Sender: FDA-Public Use
  Company Number: US-B.I. PHARMACEUTICALS,INC./RIDGEFIELD-2011-BP-23404BP

PATIENT
  Age: 88 Year
  Sex: Female

DRUGS (7)
  1. SYNTHROID [Concomitant]
     Indication: HYPOTHYROIDISM
  2. PRADAXA [Suspect]
     Indication: ATRIAL FIBRILLATION
     Dosage: 300 MG
     Route: 048
     Dates: start: 20110801
  3. NORPACE [Concomitant]
     Indication: HYPERTENSION
  4. CYANOCOBALAMIN [Concomitant]
  5. ZOCOR [Concomitant]
  6. VITAMIN B-12 [Concomitant]
  7. VITAMIN B COMPLEX CAP [Concomitant]

REACTIONS (6)
  - PRURITUS [None]
  - RASH PRURITIC [None]
  - CONSTIPATION [None]
  - RASH MACULAR [None]
  - PEMPHIGOID [None]
  - RASH MACULO-PAPULAR [None]
